FAERS Safety Report 6453216-7 (Version None)
Quarter: 2009Q4

REPORT INFORMATION
  Report Type: 
  Country: None (occurrence: None)
  Receive Date: 20091124
  Receipt Date: 20091118
  Transmission Date: 20100525
  Serious: Yes (Death)
  Sender: FDA-Public Use
  Company Number: NL-CELGENEUS-114-21880-09111380

PATIENT
  Sex: Female

DRUGS (6)
  1. REVLIMID [Suspect]
     Indication: MANTLE CELL LYMPHOMA
     Route: 048
  2. TRAMADOL [Concomitant]
     Route: 065
  3. LACTULOSE [Concomitant]
     Indication: LAXATIVE SUPPORTIVE CARE
     Route: 065
  4. TEGERETOL [Concomitant]
     Indication: EPILEPSY
     Route: 065
  5. FUROSEMIDE [Concomitant]
     Indication: HEMIPLEGIA
     Route: 065
  6. FUROSEMIDE [Concomitant]
     Indication: OEDEMA

REACTIONS (1)
  - GENERAL PHYSICAL HEALTH DETERIORATION [None]
